FAERS Safety Report 6506490-2 (Version None)
Quarter: 2009Q4

REPORT INFORMATION
  Report Type: 
  Country: None (occurrence: None)
  Receive Date: 20091216
  Receipt Date: 20091204
  Transmission Date: 20100525
  Serious: Yes (Death, Life-Threatening)
  Sender: FDA-Public Use
  Company Number: 2009-03813

PATIENT
  Age: 73 Year
  Sex: Female
  Weight: 43 kg

DRUGS (16)
  1. VELCADE [Suspect]
     Indication: MULTIPLE MYELOMA
     Dosage: 1.3 MG/M2, INTRAVENOUS
     Route: 042
     Dates: start: 20090907, end: 20090917
  2. DECADRON [Concomitant]
  3. ALLOPURINOL [Concomitant]
  4. ZANTAC /00550802/ (RANITIDINE HYDROCHLORIDE) [Concomitant]
  5. CELCOX (CELECOXIB) [Concomitant]
  6. AZULENE SODIUM SULFONATE (AZULENE SODIUM SULFONATE) [Concomitant]
  7. ITRACONAZOLE [Concomitant]
  8. SULFAMETHOXAZOLE AND TRIMETHOPRIM [Concomitant]
  9. OXYCODONE HCL [Concomitant]
  10. DUROTEP (FENTANYL) [Concomitant]
  11. KYTRIL /01178101/ (GRANISETRON) [Concomitant]
  12. SOLITA T /01128901/ (ELECTROLYTES NOS) [Concomitant]
  13. MEYLON (SODIUM BUCARBONATE) [Concomitant]
  14. LASIX [Concomitant]
  15. FIRSTCIN-S (CEFOZOPRAN HYDROCHLORIDE) [Concomitant]
  16. OMEPRAL /00661201/ (OMEPRAZOLE) [Concomitant]

REACTIONS (14)
  - CAPILLARY LEAK SYNDROME [None]
  - COUGH [None]
  - DYSPNOEA [None]
  - GASTROINTESTINAL PERFORATION [None]
  - GENERALISED OEDEMA [None]
  - HAEMOGLOBIN DECREASED [None]
  - LUNG DISORDER [None]
  - OXYGEN SATURATION DECREASED [None]
  - PLATELET COUNT DECREASED [None]
  - PLEURAL EFFUSION [None]
  - RENAL FAILURE [None]
  - SEPSIS [None]
  - SHOCK [None]
  - WHITE BLOOD CELL COUNT INCREASED [None]
